FAERS Safety Report 22766283 (Version 4)
Quarter: 2023Q4

REPORT INFORMATION
  Report Type: Spontaneous
  Country: NZ (occurrence: NZ)
  Receive Date: 20230731
  Receipt Date: 20231004
  Transmission Date: 20240109
  Serious: Yes (Death, Other)
  Sender: FDA-Public Use
  Company Number: NZ-MYLANLABS-2023M1079571

PATIENT
  Age: 72 Year
  Sex: Male

DRUGS (2)
  1. CLOZARIL [Suspect]
     Active Substance: CLOZAPINE
     Indication: Schizophrenia
     Dosage: UNK
     Route: 048
     Dates: start: 20221231, end: 20230629
  2. CLOZARIL [Suspect]
     Active Substance: CLOZAPINE
     Dosage: 20 MILLIGRAM, QD (OCTA)
     Route: 048
     Dates: start: 202302, end: 20230628

REACTIONS (3)
  - Multiple organ dysfunction syndrome [Fatal]
  - Asthenia [Fatal]
  - Pneumonia aspiration [Recovering/Resolving]

NARRATIVE: CASE EVENT DATE: 20230628
